FAERS Safety Report 8313455-7 (Version None)
Quarter: 2012Q2

REPORT INFORMATION
  Report Type: 
  Country: None (occurrence: None)
  Receive Date: 20120426
  Receipt Date: 20120420
  Transmission Date: 20120825
  Serious: Yes (Hospitalization)
  Sender: FDA-Public Use
  Company Number: US-AMGEN-USASP2011017617

PATIENT
  Age: 49 Year
  Sex: Female

DRUGS (2)
  1. ENBREL [Suspect]
     Indication: FIBROMYALGIA
     Dosage: 25 MG, 2 TIMES/WK
     Dates: start: 20090601, end: 20101001
  2. ENBREL [Suspect]
     Indication: SYSTEMIC LUPUS ERYTHEMATOSUS
     Dosage: UNK
     Dates: start: 20110301

REACTIONS (4)
  - JOINT SWELLING [None]
  - MOBILITY DECREASED [None]
  - OBESITY [None]
  - ARTHRALGIA [None]
